FAERS Safety Report 17075183 (Version 1)
Quarter: 2019Q4

REPORT INFORMATION
  Report Type: Spontaneous
  Country: US (occurrence: US)
  Receive Date: 20191125
  Receipt Date: 20191125
  Transmission Date: 20200122
  Serious: No
  Sender: FDA-Public Use
  Company Number: None

PATIENT
  Age: 52 Year
  Sex: Female
  Weight: 67.5 kg

DRUGS (2)
  1. LEVOFLOXACIN. [Suspect]
     Active Substance: LEVOFLOXACIN
     Indication: SINUSITIS
     Dosage: ?          QUANTITY:1 TABLET(S);?
     Route: 048
     Dates: start: 20191123, end: 20191124
  2. LEVOFLOXACIN. [Suspect]
     Active Substance: LEVOFLOXACIN
     Indication: VIRAL SINUSITIS
     Dosage: ?          QUANTITY:1 TABLET(S);?
     Route: 048
     Dates: start: 20191123, end: 20191124

REACTIONS (8)
  - Muscular weakness [None]
  - Myalgia [None]
  - Tendon pain [None]
  - Gait disturbance [None]
  - Pain in extremity [None]
  - Hypoaesthesia [None]
  - Malaise [None]
  - Tenderness [None]

NARRATIVE: CASE EVENT DATE: 20191124
